FAERS Safety Report 9132700 (Version 3)
Quarter: 2013Q4

REPORT INFORMATION
  Report Type: Spontaneous
  Country: JP (occurrence: JP)
  Receive Date: 20130301
  Receipt Date: 20131227
  Transmission Date: 20140711
  Serious: Yes (Other)
  Sender: FDA-Public Use
  Company Number: JP-AMGEN-JPNSP2013014149

PATIENT
  Age: 75 Year
  Sex: Male
  Weight: 58 kg

DRUGS (3)
  1. RANMARK [Suspect]
     Indication: PROSTATE CANCER
     Dosage: 120 MG, UNK
     Route: 058
     Dates: start: 20120607
  2. DOCETAXEL [Concomitant]
     Dosage: UNKNOWN, ONCE MONTHLY
     Route: 065
  3. RINESTERON [Concomitant]
     Dosage: UNKNOWN
     Route: 065

REACTIONS (1)
  - Osteonecrosis of jaw [Unknown]
